FAERS Safety Report 8322244 (Version 3)
Quarter: 2013Q4

REPORT INFORMATION
  Report Type: Spontaneous
  Country: US (occurrence: US)
  Receive Date: 20120105
  Receipt Date: 20131218
  Transmission Date: 20140711
  Serious: Yes (Hospitalization, Other)
  Sender: FDA-Public Use
  Company Number: US-BAYER-2012-000042

PATIENT
  Age: 20 Year
  Sex: Female
  Weight: 81.63 kg

DRUGS (5)
  1. YASMIN [Suspect]
     Dosage: UNK
     Dates: start: 200607, end: 200911
  2. YAZ [Suspect]
     Dosage: UNK
     Dates: start: 200607, end: 200911
  3. PERCOCET [Concomitant]
  4. IBUPROFEN [Concomitant]
  5. CITALOPRAM [Concomitant]
     Dosage: 20 MG, UNK
     Dates: start: 20070921, end: 20071223

REACTIONS (6)
  - Biliary dyskinesia [None]
  - Cholecystitis chronic [None]
  - Gallbladder disorder [None]
  - Abdominal pain upper [None]
  - Dyspepsia [None]
  - Mental disorder [None]
